FAERS Safety Report 6278387-7 (Version None)
Quarter: 2009Q3

REPORT INFORMATION
  Report Type: 
  Country: None (occurrence: None)
  Receive Date: 20090720
  Receipt Date: 20090720
  Transmission Date: 20100115
  Serious: No
  Sender: FDA-Public Use
  Company Number: None

PATIENT
  Age: 65 Year
  Sex: Male
  Weight: 67.1324 kg

DRUGS (1)
  1. ULTRAM ER [Suspect]
     Indication: BACK PAIN
     Dosage: 200 MG 1X
     Dates: start: 20080504, end: 20090717

REACTIONS (1)
  - INSOMNIA [None]
